FAERS Safety Report 5322209-5 (Version None)
Quarter: 2007Q2

REPORT INFORMATION
  Report Type: 
  Country: None (occurrence: None)
  Receive Date: 20070511
  Receipt Date: 20070430
  Transmission Date: 20071010
  Serious: Yes (Hospitalization)
  Sender: FDA-Public Use
  Company Number: CA-ROCHE-495425

PATIENT
  Age: 40 Year
  Sex: Male
  Weight: 55 kg

DRUGS (2)
  1. CAPECITABINE [Suspect]
     Indication: COLORECTAL CANCER
     Dosage: TWICE PER DAY FOR 14 DAYS OF EACH 3 WEEK CYCLE TEMPORARILY INTERRUPTED ON AN UNSPECIFIED DATE
     Route: 048
     Dates: start: 20070322
  2. ERLOTINIB [Suspect]
     Indication: COLORECTAL CANCER
     Route: 048

REACTIONS (1)
  - INTESTINAL OBSTRUCTION [None]
